FAERS Safety Report 14421331 (Version 5)
Quarter: 2021Q1

REPORT INFORMATION
  Report Type: Spontaneous
  Country: US (occurrence: US)
  Receive Date: 20180122
  Receipt Date: 20210120
  Transmission Date: 20210419
  Serious: Yes (Death, Other)
  Sender: FDA-Public Use
  Company Number: US-PFIZER INC-2018028173

PATIENT
  Age: 78 Year
  Sex: Male

DRUGS (3)
  1. GABAPENTIN. [Suspect]
     Active Substance: GABAPENTIN
     Indication: NERVE INJURY
     Dosage: 300 MG, 1X/DAY (ONCE CAPSULE AT NIGHT FOR 7 DAYS)
     Dates: start: 20180118
  2. GABAPENTIN. [Suspect]
     Active Substance: GABAPENTIN
     Indication: DIABETES MELLITUS
  3. SIMETHICON [Suspect]
     Active Substance: DIMETHICONE
     Indication: DIABETES MELLITUS
     Dosage: 80 MG CHEWABLE TABLETS X 2

REACTIONS (9)
  - Death [Fatal]
  - Fatigue [Recovered/Resolved]
  - Lower limb fracture [Unknown]
  - Feeling abnormal [Unknown]
  - Insomnia [Recovered/Resolved]
  - Psychomotor hyperactivity [Unknown]
  - Emotional distress [Unknown]
  - Off label use [Unknown]
  - Energy increased [Recovered/Resolved]

NARRATIVE: CASE EVENT DATE: 20180118
